FAERS Safety Report 8282709-5 (Version None)
Quarter: 2012Q2

REPORT INFORMATION
  Report Type: 
  Country: None (occurrence: None)
  Receive Date: 20120413
  Receipt Date: 20120404
  Transmission Date: 20120825
  Serious: Yes (Life-Threatening, Hospitalization)
  Sender: FDA-Public Use
  Company Number: CA-JNJFOC-20120111348

PATIENT
  Sex: Male
  Weight: 81.65 kg

DRUGS (4)
  1. REMICADE [Suspect]
     Dosage: INDUCTION
     Route: 042
     Dates: start: 20120321
  2. REMICADE [Suspect]
     Route: 042
  3. REMICADE [Suspect]
     Indication: COLITIS ULCERATIVE
     Route: 042
     Dates: start: 20120404
  4. IMURAN [Concomitant]
     Route: 065

REACTIONS (8)
  - BACK PAIN [None]
  - DYSPNOEA [None]
  - FLUSHING [None]
  - HEART RATE DECREASED [None]
  - INTESTINAL RESECTION [None]
  - COLOSTOMY [None]
  - INFUSION RELATED REACTION [None]
  - PALLOR [None]
